FAERS Safety Report 11341242 (Version 1)
Quarter: 2015Q3

REPORT INFORMATION
  Report Type: Spontaneous
  Country: US (occurrence: None)
  Receive Date: 20150803
  Receipt Date: 20150803
  Transmission Date: 20151125
  Serious: Yes (Disabling, Other)
  Sender: FDA-Public Use
  Company Number: None

PATIENT
  Age: 49 Year
  Sex: Male
  Weight: 78.47 kg

DRUGS (3)
  1. CRESTOR [Suspect]
     Active Substance: ROSUVASTATIN CALCIUM
     Indication: LOW DENSITY LIPOPROTEIN INCREASED
     Dosage: 1 PILL  DAILY  ONCE DAILY  TAKEN BY MOUTH
     Route: 048
     Dates: start: 20120919, end: 20150801
  2. 81MG ASPIRIN [Concomitant]
  3. CRESTOR [Suspect]
     Active Substance: ROSUVASTATIN CALCIUM
     Indication: MYOCARDIAL INFARCTION
     Dosage: 1 PILL  DAILY  ONCE DAILY  TAKEN BY MOUTH
     Route: 048
     Dates: start: 20120919, end: 20150801

REACTIONS (3)
  - Connective tissue disorder [None]
  - Gait disturbance [None]
  - Tendon disorder [None]

NARRATIVE: CASE EVENT DATE: 20150801
